FAERS Safety Report 25178042 (Version 1)
Quarter: 2025Q2

REPORT INFORMATION
  Report Type: Spontaneous
  Country: US (occurrence: None)
  Receive Date: 20250408
  Receipt Date: 20250408
  Transmission Date: 20250717
  Serious: No
  Sender: FDA-CTU
  Company Number: None

PATIENT
  Age: 72 Year
  Sex: Male

DRUGS (1)
  1. PAZOPANIB [Suspect]
     Active Substance: PAZOPANIB
     Dosage: FREQUENCY : DAILY;?
     Route: 048
     Dates: start: 20250313

REACTIONS (2)
  - Oral discomfort [None]
  - Abdominal discomfort [None]
